FAERS Safety Report 9267736 (Version 1)
Quarter: 2013Q2

REPORT INFORMATION
  Report Type: Spontaneous
  Country: US (occurrence: US)
  Receive Date: 20130502
  Receipt Date: 20130502
  Transmission Date: 20140414
  Serious: Yes (Other)
  Sender: FDA-Public Use
  Company Number: US-ALEXION-A201200889

PATIENT
  Age: 40 Year
  Sex: Male
  Weight: 79 kg

DRUGS (7)
  1. SOLIRIS 300MG [Suspect]
     Indication: PAROXYSMAL NOCTURNAL HAEMOGLOBINURIA
     Dosage: 900 MG, Q2W
     Route: 042
     Dates: start: 201203
  2. SOLIRIS 300MG [Suspect]
     Dosage: 600 MG, QW
     Route: 042
     Dates: start: 20110117, end: 201203
  3. VALTREX [Concomitant]
     Indication: INFECTION PROPHYLAXIS
     Dosage: 500 MG, BID
     Route: 048
     Dates: start: 2009
  4. FOLIC ACID [Concomitant]
     Indication: APLASTIC ANAEMIA
     Dosage: 25 MG X 5 QD
     Route: 048
     Dates: start: 2011
  5. MARIJUANA [Concomitant]
     Indication: ABDOMINAL DISCOMFORT
     Dosage: PRN
     Route: 048
     Dates: start: 2011
  6. MARIJUANA [Concomitant]
     Indication: MUSCLE RELAXANT THERAPY
  7. MARINOL [Concomitant]
     Indication: SUPPLEMENTATION THERAPY
     Dosage: 10 MG QC OR BID (ONCE A WEEK)
     Route: 048
     Dates: start: 2011

REACTIONS (1)
  - VIIth nerve paralysis [Recovering/Resolving]
